FAERS Safety Report 7295164-9 (Version None)
Quarter: 2011Q1

REPORT INFORMATION
  Report Type: 
  Country: None (occurrence: None)
  Receive Date: 20110216
  Receipt Date: 20040213
  Transmission Date: 20110831
  Serious: Yes (Hospitalization, Disabling)
  Sender: FDA-Public Use
  Company Number: US-JNJFOC-20100903809

PATIENT
  Weight: 70.31 kg

DRUGS (1)
  1. PROPULSID [Suspect]
     Indication: GASTROOESOPHAGEAL REFLUX DISEASE
     Route: 048

REACTIONS (22)
  - NAUSEA [None]
  - GASTROOESOPHAGEAL REFLUX DISEASE [None]
  - CONFUSIONAL STATE [None]
  - ELECTROLYTE IMBALANCE [None]
  - DEHYDRATION [None]
  - HEART RATE IRREGULAR [None]
  - HEART RATE INCREASED [None]
  - PAIN [None]
  - PORPHYRIA [None]
  - PALPITATIONS [None]
  - MIGRAINE [None]
  - VOMITING [None]
  - DIARRHOEA [None]
  - AMNESIA [None]
  - DISTURBANCE IN ATTENTION [None]
  - ANXIETY [None]
  - URINARY TRACT INFECTION [None]
  - TRICUSPID VALVE INCOMPETENCE [None]
  - DYSPNOEA [None]
  - IRRITABLE BOWEL SYNDROME [None]
  - HYPERTENSION [None]
  - FATIGUE [None]
